FAERS Safety Report 19408722 (Version 1)
Quarter: 2021Q2

REPORT INFORMATION
  Report Type: Spontaneous
  Country: DE (occurrence: DE)
  Receive Date: 20210613
  Receipt Date: 20210613
  Transmission Date: 20210717
  Serious: Yes (Other)
  Sender: FDA-Public Use
  Company Number: NVSC2021DE125121

PATIENT
  Age: 81 Year
  Sex: Female

DRUGS (1)
  1. BEOVU [Suspect]
     Active Substance: BROLUCIZUMAB-DBLL
     Indication: PRODUCT USED FOR UNKNOWN INDICATION
     Dosage: RIGHT EYE, FREQUENCY: 5X
     Route: 031
     Dates: end: 20210426

REACTIONS (5)
  - Uveitis [Not Recovered/Not Resolved]
  - Retinal infiltrates [Not Recovered/Not Resolved]
  - Vitreous disorder [Not Recovered/Not Resolved]
  - Eye inflammation [Not Recovered/Not Resolved]
  - Anterior chamber disorder [Not Recovered/Not Resolved]

NARRATIVE: CASE EVENT DATE: 20210531
